FAERS Safety Report 13340797 (Version 1)
Quarter: 2017Q1

REPORT INFORMATION
  Report Type: Spontaneous
  Country: JP (occurrence: JP)
  Receive Date: 20170316
  Receipt Date: 20170316
  Transmission Date: 20170428
  Serious: Yes (Other)
  Sender: FDA-Public Use
  Company Number: JP-TEVA-2017-JP-000645J

PATIENT
  Age: 23 Year
  Sex: Female

DRUGS (3)
  1. AMBROXOL HYDROCHLORIDE TABLET 15MG [Suspect]
     Active Substance: AMBROXOL HYDROCHLORIDE
     Indication: NASOPHARYNGITIS
     Route: 048
  2. CARBOCISTEINE TABLET 500MG [Suspect]
     Active Substance: CARBOCYSTEINE
     Indication: NASOPHARYNGITIS
     Route: 048
  3. DEXTROMETHORPHAN HYDROBROMIDE HYDRATE [Suspect]
     Active Substance: DEXTROMETHORPHAN HYDROBROMIDE
     Indication: NASOPHARYNGITIS
     Route: 048

REACTIONS (1)
  - Acute generalised exanthematous pustulosis [Recovering/Resolving]
